FAERS Safety Report 5660086-3 (Version None)
Quarter: 2008Q1

REPORT INFORMATION
  Report Type: 
  Country: None (occurrence: None)
  Receive Date: 20080311
  Receipt Date: 20070911
  Transmission Date: 20080703
  Serious: No
  Sender: FDA-Public Use
  Company Number: US-BAYER-200712927BCC

PATIENT
  Sex: Female
  Weight: 53 kg

DRUGS (10)
  1. ALEVE [Suspect]
     Indication: ARTHRALGIA
     Dosage: TOTAL DAILY DOSE: 440 MG  UNIT DOSE: 220 MG
     Route: 048
  2. DETROL LA [Concomitant]
  3. LORAZEPAM [Concomitant]
     Indication: ANXIETY
  4. THEOPHYLLINE [Concomitant]
  5. ALBUTEROL [Concomitant]
     Route: 055
  6. FLOVENT [Concomitant]
     Route: 055
  7. COMBIVENT [Concomitant]
  8. PREMARIN [Concomitant]
  9. OXYGEN [Concomitant]
  10. GENERIC BENADRYL [Concomitant]

REACTIONS (1)
  - HEADACHE [None]
